FAERS Safety Report 4865136-X (Version None)
Quarter: 2005Q4

REPORT INFORMATION
  Report Type: 
  Country: None (occurrence: None)
  Receive Date: 20051220
  Receipt Date: 20051207
  Transmission Date: 20060501
  Serious: Yes (Other)
  Sender: FDA-Public Use
  Company Number: PAR_0380_2005

PATIENT
  Age: 65 Year
  Sex: Female
  Weight: 48.9885 kg

DRUGS (2)
  1. IMIPRAMINE [Suspect]
     Indication: POLLAKIURIA
     Dosage: 10 MG NIGHTLY PO
     Route: 048
     Dates: start: 20040101
  2. IMIPRAMINE [Suspect]
     Indication: POLLAKIURIA
     Dosage: 10 MG QAM PO
     Route: 048
     Dates: start: 20051001

REACTIONS (4)
  - ASTHENIA [None]
  - DEPRESSION [None]
  - MORBID THOUGHTS [None]
  - SURGERY [None]
